FAERS Safety Report 15956322 (Version 1)
Quarter: 2019Q1

REPORT INFORMATION
  Report Type: Spontaneous
  Country: US (occurrence: US)
  Receive Date: 20190213
  Receipt Date: 20190213
  Transmission Date: 20190417
  Serious: Yes (Other)
  Sender: FDA-Public Use
  Company Number: US-PFIZER INC-2017488535

PATIENT
  Age: 58 Year
  Sex: Male
  Weight: 113 kg

DRUGS (4)
  1. TICAGRELOR. [Interacting]
     Active Substance: TICAGRELOR
     Dosage: 90 MG, 2X/DAY
  2. ASPIRIN. [Concomitant]
     Active Substance: ASPIRIN
     Dosage: 81 MG, DAILY
  3. METOPROLOL TARTRATE. [Concomitant]
     Active Substance: METOPROLOL TARTRATE
     Dosage: 50 MG, 2X/DAY
  4. ATORVASTATIN CALCIUM. [Suspect]
     Active Substance: ATORVASTATIN CALCIUM
     Dosage: 40 MG, DAILY

REACTIONS (2)
  - Blood creatine phosphokinase increased [Recovered/Resolved]
  - Drug interaction [Unknown]
